FAERS Safety Report 7299615-5 (Version None)
Quarter: 2011Q1

REPORT INFORMATION
  Report Type: 
  Country: None (occurrence: None)
  Receive Date: 20110208
  Receipt Date: 20110128
  Transmission Date: 20110831
  Serious: Yes (Other)
  Sender: FDA-Public Use
  Company Number: 005393

PATIENT
  Age: 25 Month
  Sex: Female

DRUGS (6)
  1. VITAMIN B6 [Concomitant]
  2. KEPPRA [Suspect]
     Indication: EPILEPSY
     Dosage: (1000 MG QD TRANSPLACENTAL), (750 MG QD TRANSPLACENTAL)
     Route: 064
     Dates: start: 20070426, end: 20071221
  3. KEPPRA [Suspect]
     Indication: EPILEPSY
     Dosage: (1000 MG QD TRANSPLACENTAL), (750 MG QD TRANSPLACENTAL)
     Route: 064
     Dates: start: 20070329, end: 20070425
  4. FOLIC ACID [Concomitant]
  5. ANTIBIOTICS [Concomitant]
  6. PRENATAL VITAMINS /01549301/ [Concomitant]

REACTIONS (3)
  - BODY HEIGHT INCREASED [None]
  - MACROCEPHALY [None]
  - MATERNAL DRUGS AFFECTING FOETUS [None]
